FAERS Safety Report 15433859 (Version 1)
Quarter: 2018Q3

REPORT INFORMATION
  Report Type: Spontaneous
  Country: US (occurrence: US)
  Receive Date: 20180921
  Receipt Date: 20180921
  Transmission Date: 20181010
  Serious: Yes (Death)
  Sender: FDA-Public Use
  Company Number: None

PATIENT
  Age: 65 Year
  Sex: Male
  Weight: 81.1 kg

DRUGS (14)
  1. CYTARABINE. [Suspect]
     Active Substance: CYTARABINE
     Indication: ACUTE MYELOID LEUKAEMIA
     Dosage: ?          OTHER FREQUENCY:EVERY 12 HRS;?
     Route: 041
     Dates: start: 20180814, end: 20180817
  2. LISINOPRIL 5MG TWICE DAILY [Concomitant]
  3. ACETAMINOPHEN 650MG AS NEEDED [Concomitant]
  4. GLIPIZIDE 10MG TWICE DAILY [Concomitant]
  5. TAMSULOSIN 0.4MG DAILY [Concomitant]
  6. ATORVASTATIN 40MG DAILY [Concomitant]
  7. NIFEDIPINE XL 30MG DAILY [Concomitant]
  8. POTASSIUM CHLORIDE 10MEQ DAILY [Concomitant]
  9. METOPROLOL ER 100MG DAILY [Concomitant]
  10. FUROSEMIDE 40MG DAILY [Concomitant]
  11. RYDAPT [Suspect]
     Active Substance: MIDOSTAURIN
     Indication: ACUTE MYELOID LEUKAEMIA
     Route: 048
     Dates: start: 20180821, end: 20180824
  12. RYDAPT [Suspect]
     Active Substance: MIDOSTAURIN
     Indication: FMS-LIKE TYROSINE KINASE 3 POSITIVE
     Route: 048
     Dates: start: 20180821, end: 20180824
  13. GABAPENTIN 300MG DAILY [Concomitant]
  14. METFORMIN ER 1000MG TWICE DAILY [Concomitant]

REACTIONS (4)
  - Thrombocytopenia [None]
  - Febrile neutropenia [None]
  - Gastrointestinal haemorrhage [None]
  - Sepsis [None]

NARRATIVE: CASE EVENT DATE: 20180825
